FAERS Safety Report 4598226-X (Version None)
Quarter: 2005Q1

REPORT INFORMATION
  Report Type: 
  Country: None (occurrence: None)
  Receive Date: 20050301
  Receipt Date: 20050301
  Transmission Date: 20050727
  Serious: No
  Sender: FDA-Public Use
  Company Number: None

PATIENT
  Age: 68 Year
  Sex: Male
  Weight: 86.2 kg

DRUGS (1)
  1. VICODIN [Suspect]

REACTIONS (2)
  - LETHARGY [None]
  - SOMNOLENCE [None]
